FAERS Safety Report 4598957-1 (Version None)
Quarter: 2005Q1

REPORT INFORMATION
  Report Type: 
  Country: None (occurrence: None)
  Receive Date: 20050302
  Receipt Date: 20050215
  Transmission Date: 20050727
  Serious: Yes (Hospitalization)
  Sender: FDA-Public Use
  Company Number: 2005-BP-02346BP

PATIENT
  Age: 51 Year
  Sex: Male

DRUGS (7)
  1. COMBIVENT [Suspect]
     Indication: ASTHMA
     Dosage: 72 MCG (SEE TEXT, 2 PUFFS BID), IH
     Route: 055
     Dates: start: 20000101
  2. SPIRIVA [Suspect]
     Indication: ASTHMA
     Dosage: NR (18 MCG), IH
     Route: 055
     Dates: start: 20040815, end: 20050125
  3. SUDAFED 12 HOUR [Suspect]
  4. ADVAIR DISKUS 100/50 [Concomitant]
  5. NASACORT [Concomitant]
  6. XOPENEX [Concomitant]
  7. UNIPHYL [Concomitant]

REACTIONS (5)
  - ABDOMINAL PAIN UPPER [None]
  - BENIGN PROSTATIC HYPERPLASIA [None]
  - BODY TEMPERATURE INCREASED [None]
  - CONSTIPATION [None]
  - URINARY RETENTION [None]
